FAERS Safety Report 18691352 (Version 1)
Quarter: 2021Q1

REPORT INFORMATION
  Report Type: Other
  Country: DE (occurrence: DE)
  Receive Date: 20210101
  Receipt Date: 20210101
  Transmission Date: 20210419
  Serious: No
  Sender: FDA-Public Use
  Company Number: DE-LUPIN PHARMACEUTICALS INC.-2020-11014

PATIENT
  Age: 33 Year
  Sex: Female
  Weight: 57 kg

DRUGS (2)
  1. OLANZAPINE. [Suspect]
     Active Substance: OLANZAPINE
     Indication: PSYCHOTIC DISORDER
     Dosage: UNK
     Route: 048
  2. ZIPRASIDONE. [Suspect]
     Active Substance: ZIPRASIDONE
     Indication: PSYCHOTIC DISORDER
     Dosage: 80 MILLIGRAM, QD (2 MAL 40MG ZIPRASIDON)
     Route: 048
     Dates: start: 20200421, end: 20201215

REACTIONS (3)
  - Saccadic eye movement [Recovered/Resolved]
  - Blepharospasm [Recovered/Resolved]
  - Nystagmus [Recovered/Resolved]
